FAERS Safety Report 6070800-3 (Version None)
Quarter: 2009Q1

REPORT INFORMATION
  Report Type: 
  Country: None (occurrence: None)
  Receive Date: 20090209
  Receipt Date: 20080710
  Transmission Date: 20090719
  Serious: No
  Sender: FDA-Public Use
  Company Number: A0736958A

PATIENT
  Sex: Female

DRUGS (2)
  1. PAROXETINE HCL [Suspect]
     Indication: DEPRESSION
  2. NO CONCURRENT MEDICATION [Concomitant]

REACTIONS (2)
  - DRUG INEFFECTIVE [None]
  - ILL-DEFINED DISORDER [None]
